FAERS Safety Report 9357706 (Version 1)
Quarter: 2013Q2

REPORT INFORMATION
  Report Type: Report from Study
  Country: US (occurrence: US)
  Receive Date: 20130620
  Receipt Date: 20130620
  Transmission Date: 20140414
  Serious: Yes (Hospitalization)
  Sender: FDA-Public Use
  Company Number: US-SANOFI-AVENTIS-2013SA061173

PATIENT
  Sex: Female

DRUGS (3)
  1. AUBAGIO [Suspect]
     Route: 048
  2. KLONOPIN [Suspect]
     Route: 065
  3. OXYCONTIN [Suspect]
     Route: 065

REACTIONS (2)
  - Respiration abnormal [Unknown]
  - Drug dose omission [Unknown]
